FAERS Safety Report 10718704 (Version 2)
Quarter: 2015Q1

REPORT INFORMATION
  Report Type: Spontaneous
  Country: US (occurrence: US)
  Receive Date: 20150119
  Receipt Date: 20150119
  Transmission Date: 20150721
  Serious: No
  Sender: FDA-Public Use
  Company Number: US-UNITED THERAPEUTICS-UNT-2014-002166

PATIENT
  Age: 62 Year
  Sex: Female
  Weight: 95.24 kg

DRUGS (3)
  1. REVATIO [Concomitant]
     Active Substance: SILDENAFIL CITRATE
     Indication: PRODUCT USED FOR UNKNOWN INDICATION
  2. WARFARIN [Concomitant]
     Active Substance: WARFARIN
     Indication: PRODUCT USED FOR UNKNOWN INDICATION
  3. REMODULIN [Suspect]
     Active Substance: TREPROSTINIL
     Indication: PULMONARY ARTERIAL HYPERTENSION
     Dosage: 0.085 ?G/KG/MIN, CONTINUING
     Route: 058
     Dates: start: 20111006

REACTIONS (2)
  - Infusion site haemorrhage [Recovered/Resolved]
  - Coagulation time prolonged [Unknown]

NARRATIVE: CASE EVENT DATE: 201405
